FAERS Safety Report 23703308 (Version 1)
Quarter: 2024Q2

REPORT INFORMATION
  Report Type: Spontaneous
  Country: FR (occurrence: FR)
  Receive Date: 20240403
  Receipt Date: 20240403
  Transmission Date: 20240715
  Serious: Yes (Hospitalization)
  Sender: FDA-Public Use
  Company Number: None

PATIENT
  Age: 65 Year
  Sex: Male

DRUGS (7)
  1. ALPRAZOLAM [Suspect]
     Active Substance: ALPRAZOLAM
     Indication: Product used for unknown indication
     Dosage: 0.5 MG PAR JOUR
     Route: 048
     Dates: start: 202304, end: 202308
  2. DAFALGAN CODEINE [Suspect]
     Active Substance: ACETAMINOPHEN\CODEINE PHOSPHATE
     Indication: Product used for unknown indication
     Dosage: 1 COMPRIM? PAR JOUR
     Route: 048
     Dates: start: 2023, end: 20231002
  3. METHADONE HYDROCHLORIDE [Suspect]
     Active Substance: METHADONE HYDROCHLORIDE
     Indication: Product used for unknown indication
     Dosage: UNE SEULE PRISE PAR LE PATIENT POUR SUBSTITUER LA MORPHINE
     Route: 048
     Dates: start: 2023, end: 2023
  4. MORPHINE HYDROCHLORIDE [Suspect]
     Active Substance: MORPHINE HYDROCHLORIDE
     Indication: Product used for unknown indication
     Dosage: 60 ? 100MG PAR JOUR EN 1 PRISE (POSOLOGIE AVANT SA PREMI?RE D?MARCHE HOSPITALI?RE)
     Route: 058
     Dates: start: 2021, end: 20231229
  5. OXYCODONE HYDROCHLORIDE [Suspect]
     Active Substance: OXYCODONE HYDROCHLORIDE
     Indication: Product used for unknown indication
     Dosage: PRISE DE FA?ON OCCASIONNELLE ET AL?ATOIRE SELON LES CRISES MIGRAINEUSES
     Route: 048
     Dates: start: 2018, end: 2021
  6. TRAMADOL [Suspect]
     Active Substance: TRAMADOL\TRAMADOL HYDROCHLORIDE
     Indication: Product used for unknown indication
     Dosage: 50 OU 100 MG PLUSIEURS FOIS PAR SEMAINE
     Route: 048
     Dates: start: 2023, end: 20231002
  7. RIMEGEPANT [Suspect]
     Active Substance: RIMEGEPANT
     Indication: Product used for unknown indication
     Route: 048
     Dates: start: 2023, end: 20240308

REACTIONS (7)
  - Drug abuse [Recovered/Resolved]
  - Product prescribing issue [Recovered/Resolved]
  - Self-medication [Recovered/Resolved]
  - Sleep disorder [Recovering/Resolving]
  - Headache [Recovering/Resolving]
  - Drug dependence [Recovered/Resolved]
  - Depression [Recovering/Resolving]

NARRATIVE: CASE EVENT DATE: 20180101
